FAERS Safety Report 17535328 (Version 1)
Quarter: 2020Q1

REPORT INFORMATION
  Report Type: Spontaneous
  Country: AT (occurrence: AT)
  Receive Date: 20200313
  Receipt Date: 20200313
  Transmission Date: 20200409
  Serious: No
  Sender: FDA-Public Use
  Company Number: AT-ALKEM LABORATORIES LIMITED-AT-ALKEM-2019-10607

PATIENT
  Age: 25 Year
  Sex: Female

DRUGS (5)
  1. CINACALCET. [Suspect]
     Active Substance: CINACALCET
     Dosage: 90 MILLIGRAM THREE TIMES PER WEEK
     Route: 065
  2. CHOLECALCIFEROL [Suspect]
     Active Substance: CHOLECALCIFEROL
     Indication: PRODUCT USED FOR UNKNOWN INDICATION
     Dosage: 0.25 MICROGRAM
     Route: 048
  3. CINACALCET. [Suspect]
     Active Substance: CINACALCET
     Indication: BLOOD PARATHYROID HORMONE INCREASED
     Dosage: 30 MILLIGRAM THREE TIMES PER WEEK
     Route: 065
  4. CHOLECALCIFEROL [Suspect]
     Active Substance: CHOLECALCIFEROL
     Dosage: 0.5 MICROGRAM THREE TIMES PER WEEK
     Route: 048
  5. CHOLECALCIFEROL [Suspect]
     Active Substance: CHOLECALCIFEROL
     Dosage: 6000 IU PER WEEK
     Route: 048

REACTIONS (2)
  - Drug ineffective [Unknown]
  - Exposure during pregnancy [Unknown]
